FAERS Safety Report 9852330 (Version 1)
Quarter: 2014Q1

REPORT INFORMATION
  Report Type: Spontaneous
  Country: US (occurrence: None)
  Receive Date: 20140127
  Receipt Date: 20140127
  Transmission Date: 20141002
  Serious: Yes (Hospitalization)
  Sender: FDA-Public Use
  Company Number: 2014-US-000443

PATIENT
  Age: 66 Year
  Sex: Female

DRUGS (1)
  1. XYREM (SODIUM OXYBATE) ORAL SOLUTION, 500MG/ML [Suspect]
     Indication: APNOEA
     Route: 048
     Dates: start: 200801, end: 2008

REACTIONS (2)
  - Hip surgery [None]
  - Procedural pain [None]
